FAERS Safety Report 23806275 (Version 1)
Quarter: 2024Q2

REPORT INFORMATION
  Report Type: Spontaneous
  Country: ES (occurrence: ES)
  Receive Date: 20240502
  Receipt Date: 20240502
  Transmission Date: 20240716
  Serious: Yes (Hospitalization)
  Sender: FDA-Public Use
  Company Number: None

PATIENT
  Age: 80 Year
  Sex: Male

DRUGS (9)
  1. JARDIANCE [Suspect]
     Active Substance: EMPAGLIFLOZIN
     Indication: Cardiac failure
     Route: 048
     Dates: start: 20230919, end: 20231102
  2. ELIQUIS [Concomitant]
     Active Substance: APIXABAN
     Indication: Product used for unknown indication
     Route: 048
     Dates: start: 20230919
  3. EZETIMIBA SANDOZ 10 MG COMPRIMIDOS EFG , 28 comprimidos [Concomitant]
     Indication: Product used for unknown indication
     Route: 048
     Dates: start: 20230404
  4. Ultibro Breezhaler 85mcg/43mcg polvo para inhalacion (capsula dura), e [Concomitant]
     Indication: Product used for unknown indication
     Route: 055
     Dates: start: 20200204
  5. PRAVASTATINA SANDOZ 20 mg COMPRIMIDOS EFG, 28 comprimidos [Concomitant]
     Indication: Product used for unknown indication
     Route: 048
     Dates: start: 20230707
  6. FUROSEMIDA KERN PHARMA 40 mg COMPRIMIDOS EFG, 30 comprimidos [Concomitant]
     Indication: Product used for unknown indication
     Route: 048
     Dates: start: 20211215
  7. ZYLORIC 300 mg COMPRIMIDOS, 30 comprimidos [Concomitant]
     Indication: Product used for unknown indication
     Route: 048
     Dates: start: 20230501
  8. OMEPRAZOL SANDOZ FARMACEUTICA 20 MG CAPSULAS DURAS GASTRORRESISTENTES [Concomitant]
     Indication: Product used for unknown indication
     Route: 048
     Dates: start: 20220829
  9. ATENOLOL NORMON 50 mg COMPRIMIDOS RECUBIERTOS EFG , 60 comprimidos [Concomitant]
     Indication: Product used for unknown indication
     Route: 048
     Dates: start: 20150522

REACTIONS (1)
  - Eosinophilic pneumonia [Recovered/Resolved]

NARRATIVE: CASE EVENT DATE: 20231102
